FAERS Safety Report 8012195-1 (Version None)
Quarter: 2011Q4

REPORT INFORMATION
  Report Type: 
  Country: None (occurrence: None)
  Receive Date: 20111228
  Receipt Date: 20111215
  Transmission Date: 20120403
  Serious: No
  Sender: FDA-Public Use
  Company Number: US-BAYER-2011-121292

PATIENT
  Age: 83 Year
  Sex: Female
  Weight: 56 kg

DRUGS (8)
  1. MECLIZINE [Concomitant]
  2. CELESTONE [Concomitant]
  3. MULTIVITAMIN [Concomitant]
  4. ALEVE-D SINUS + COLD [Suspect]
     Indication: ANALGESIC THERAPY
     Dosage: 1 DF, ONCE
     Dates: start: 20111206, end: 20111206
  5. LUCENTIS [Concomitant]
  6. CALCIUM D [Concomitant]
  7. SYNTHROID [Concomitant]
     Dosage: 0.75 MCG/24HR, UNK
  8. VITAMIN B COMPLEX CAP [Concomitant]

REACTIONS (4)
  - GROIN PAIN [None]
  - PAIN IN EXTREMITY [None]
  - VERTIGO [None]
  - EXPIRED DRUG ADMINISTERED [None]
